FAERS Safety Report 19695031 (Version 4)
Quarter: 2022Q1

REPORT INFORMATION
  Report Type: Report from Study
  Country: HU (occurrence: HU)
  Receive Date: 20210812
  Receipt Date: 20220214
  Transmission Date: 20220424
  Serious: Yes (Hospitalization)
  Sender: FDA-Public Use
  Company Number: HU-ABBVIE-21P-076-4025358-00

PATIENT
  Age: 74 Year
  Sex: Male
  Weight: 95.5 kg

DRUGS (21)
  1. VENETOCLAX [Suspect]
     Active Substance: VENETOCLAX
     Indication: Plasma cell myeloma
     Dosage: CYCLE 1 OF 28 DAY CYCLE
     Route: 048
     Dates: start: 20210525, end: 20210621
  2. VENETOCLAX [Suspect]
     Active Substance: VENETOCLAX
     Dosage: CYCLE = 28 DAYS
     Route: 048
     Dates: start: 20210622, end: 20210803
  3. VENETOCLAX [Suspect]
     Active Substance: VENETOCLAX
     Dosage: CYCLE = 28 DAYS
     Route: 048
     Dates: start: 20210823
  4. DEXAMETHASONE [Suspect]
     Active Substance: DEXAMETHASONE
     Indication: Plasma cell myeloma
     Dosage: CYCLE 1-9 ON DAYS 1, 8, 15 AND 22 OF 28 DAY CYCLE
     Route: 048
     Dates: start: 20210525, end: 20210615
  5. DEXAMETHASONE [Suspect]
     Active Substance: DEXAMETHASONE
     Dosage: CYCLE 1-9 ON DAYS 1, 8, 15 AND 22 OF 28 DAY CYCLE
     Route: 048
     Dates: start: 20210622, end: 20210803
  6. DEXAMETHASONE [Suspect]
     Active Substance: DEXAMETHASONE
     Dosage: CYCLE 1-9 ON DAYS 1, 8, 15 AND 22 OF 28 DAY CYCLE
     Route: 048
     Dates: start: 20210823
  7. CARFILZOMIB [Suspect]
     Active Substance: CARFILZOMIB
     Indication: Plasma cell myeloma
     Dosage: CYCLE 1: 20 MG/M2 ON D1; 70 MG/M2 ON D8-15,  CYCLE 2-18 ON D1, 8 AND 15
     Route: 042
     Dates: start: 20210525, end: 20210525
  8. CARFILZOMIB [Suspect]
     Active Substance: CARFILZOMIB
     Dosage: CYCLE 1: 20 MG/M2 ON D1; 70 MG/M2 ON D8-15,  CYCLE 2-18 ON D1, 8 AND 15
     Route: 042
     Dates: start: 20210601, end: 20210803
  9. CARFILZOMIB [Suspect]
     Active Substance: CARFILZOMIB
     Dosage: CYCLE 1: 20 MG/M2 ON D1; 70 MG/M2 ON D8-15,  CYCLE 2-18 ON D1, 8 AND 15
     Route: 042
     Dates: start: 20210823
  10. ALLOPURINOL [Concomitant]
     Active Substance: ALLOPURINOL
     Indication: Prophylaxis
     Route: 048
     Dates: start: 20210520, end: 20210706
  11. ACYCLOVIR [Concomitant]
     Active Substance: ACYCLOVIR
     Indication: Antiviral prophylaxis
     Route: 048
     Dates: start: 20170101
  12. COPERINEVA [Concomitant]
     Indication: Hypertension
     Route: 048
     Dates: start: 20200601
  13. PANTOPRAZOLE [Concomitant]
     Active Substance: PANTOPRAZOLE
     Indication: Gastrooesophageal reflux prophylaxis
     Route: 048
     Dates: start: 20170101
  14. SULFAMETHOXAZOLE\TRIMETHOPRIM [Concomitant]
     Active Substance: SULFAMETHOXAZOLE\TRIMETHOPRIM
     Indication: Antibiotic prophylaxis
     Route: 048
     Dates: start: 20180108
  15. METFORMIN HYDROCHLORIDE [Concomitant]
     Active Substance: METFORMIN HYDROCHLORIDE
     Indication: Glucose tolerance impaired
     Route: 048
     Dates: start: 20200317
  16. XARELTO [Concomitant]
     Active Substance: RIVAROXABAN
     Indication: Thrombosis prophylaxis
     Route: 048
     Dates: start: 20200317
  17. PROPRANOLOL HYDROCHLORIDE [Concomitant]
     Active Substance: PROPRANOLOL HYDROCHLORIDE
     Indication: Hypertension
     Route: 048
     Dates: start: 20191201
  18. CALCIUM [Concomitant]
     Active Substance: CALCIUM
     Indication: Prophylaxis
     Route: 048
     Dates: start: 20170101
  19. VITAMIN D [Concomitant]
     Active Substance: VITAMIN D NOS
     Indication: Prophylaxis
     Route: 048
     Dates: start: 20170101
  20. AMLODIPINE BESYLATE [Concomitant]
     Active Substance: AMLODIPINE BESYLATE
     Indication: Hypertension
     Route: 048
     Dates: start: 20210520
  21. LEVOFLOXACIN [Concomitant]
     Active Substance: LEVOFLOXACIN
     Indication: Antibiotic prophylaxis
     Route: 048
     Dates: start: 20210520

REACTIONS (1)
  - Pyrexia [Recovered/Resolved]

NARRATIVE: CASE EVENT DATE: 20210803
